FAERS Safety Report 11316224 (Version 2)
Quarter: 2015Q3

REPORT INFORMATION
  Report Type: Report from Study
  Country: GB (occurrence: GB)
  Receive Date: 20150728
  Receipt Date: 20150731
  Transmission Date: 20151125
  Serious: Yes (Hospitalization)
  Sender: FDA-Public Use
  Company Number: GB-JNJFOC-20150715084

PATIENT
  Age: 75 Year
  Sex: Male
  Weight: 84 kg

DRUGS (5)
  1. ALENDRONIC ACID [Concomitant]
     Active Substance: ALENDRONIC ACID
     Route: 048
     Dates: start: 20110207
  2. CO CODAMOL [Concomitant]
     Active Substance: ACETAMINOPHEN\CODEINE PHOSPHATE
     Dosage: 60/1000 MG
     Route: 048
     Dates: start: 20110207
  3. ABIRATERONE [Suspect]
     Active Substance: ABIRATERONE
     Indication: PROSTATE CANCER METASTATIC
     Route: 048
     Dates: start: 20150318
  4. TRIPTORELIN [Suspect]
     Active Substance: TRIPTORELIN
     Indication: PROSTATE CANCER METASTATIC
     Route: 050
     Dates: start: 20150213
  5. AMITRIPTYLINE [Concomitant]
     Active Substance: AMITRIPTYLINE
     Route: 048
     Dates: start: 20110712

REACTIONS (1)
  - Syncope [Recovered/Resolved]

NARRATIVE: CASE EVENT DATE: 20150715
